FAERS Safety Report 9248543 (Version 3)
Quarter: 2013Q2

REPORT INFORMATION
  Report Type: Spontaneous
  Country: US (occurrence: US)
  Receive Date: 20130423
  Receipt Date: 20130508
  Transmission Date: 20140414
  Serious: No
  Sender: FDA-Public Use
  Company Number: US-VERTEX PHARMACEUTICALS INC.-2013-005273

PATIENT
  Age: 7 Year
  Sex: Male

DRUGS (1)
  1. KALYDECO [Suspect]
     Indication: CYSTIC FIBROSIS
     Dosage: UNK
     Dates: start: 201204

REACTIONS (2)
  - Memory impairment [Not Recovered/Not Resolved]
  - Reading disorder [Not Recovered/Not Resolved]
